FAERS Safety Report 11259008 (Version 6)
Quarter: 2016Q2

REPORT INFORMATION
  Report Type: Report from Study
  Country: JP (occurrence: JP)
  Receive Date: 20150710
  Receipt Date: 20160506
  Transmission Date: 20160815
  Serious: No
  Sender: FDA-Public Use
  Company Number: JP-ASTELLAS-2015JP014608

PATIENT
  Age: 55 Year
  Sex: Male

DRUGS (5)
  1. NAIXAN                             /00256201/ [Concomitant]
     Active Substance: NAPROXEN
     Indication: PROPHYLAXIS
     Route: 048
     Dates: end: 20150809
  2. LYRICA [Concomitant]
     Active Substance: PREGABALIN
     Indication: PROPHYLAXIS
     Route: 048
     Dates: end: 20150809
  3. OXYCONTIN [Concomitant]
     Active Substance: OXYCODONE HYDROCHLORIDE
     Indication: PROPHYLAXIS
     Route: 048
     Dates: end: 20150724
  4. ENZALUTAMIDE [Suspect]
     Active Substance: ENZALUTAMIDE
     Indication: HORMONE-REFRACTORY PROSTATE CANCER
     Route: 048
     Dates: start: 20150609, end: 20150707
  5. OXINORM                            /00045603/ [Concomitant]
     Active Substance: OXYCODONE HYDROCHLORIDE
     Indication: PROPHYLAXIS
     Route: 048
     Dates: end: 20150724

REACTIONS (1)
  - Rash [Unknown]

NARRATIVE: CASE EVENT DATE: 20150707
